FAERS Safety Report 19680071 (Version 1)
Quarter: 2021Q3

REPORT INFORMATION
  Report Type: Spontaneous
  Country: US (occurrence: US)
  Receive Date: 20210808
  Receipt Date: 20210808
  Transmission Date: 20211014
  Serious: Yes (Other)
  Sender: FDA-Public Use
  Company Number: None

PATIENT
  Age: 67 Year
  Sex: Female
  Weight: 69.75 kg

DRUGS (25)
  1. HYDRALAZINE [Concomitant]
     Active Substance: HYDRALAZINE HYDROCHLORIDE
  2. VITAMIN SUPPLEMENTS [Concomitant]
     Active Substance: VITAMINS
  3. VITAMIN E [Concomitant]
     Active Substance: .ALPHA.-TOCOPHEROL
  4. LISINOPRIL. [Concomitant]
     Active Substance: LISINOPRIL
  5. VALACYCLOVIR [Concomitant]
     Active Substance: VALACYCLOVIR HYDROCHLORIDE
  6. ALFALFA [Concomitant]
     Active Substance: ALFALFA
  7. COENZYME Q10 [Concomitant]
     Active Substance: DIETARY SUPPLEMENT\UBIDECARENONE
  8. ASPIRIN. [Concomitant]
     Active Substance: ASPIRIN
  9. ECHINACEA W/GOLDENSEAL [Concomitant]
  10. ZINC. [Concomitant]
     Active Substance: ZINC
  11. AMOXICILLIN 500 MG [Concomitant]
     Active Substance: AMOXICILLIN
  12. VITAMIN D3 [Concomitant]
     Active Substance: CHOLECALCIFEROL
  13. VITAMIN B COMPLEX [Concomitant]
     Active Substance: CYANOCOBALAMIN\DEXPANTHENOL\NIACINAMIDE\PYRIDOXINE HYDROCHLORIDE\RIBOFLAVIN 5^-PHOSPHATE SODIUM\THIAMINE HYDROCHLORIDE\VITAMIN B COMPLEX
  14. VITAMIN B12 [Concomitant]
     Active Substance: CYANOCOBALAMIN
  15. RED YEAST RICE [Concomitant]
     Active Substance: DIETARY SUPPLEMENT
  16. GINKGO BILOBA [Concomitant]
     Active Substance: GINKGO
  17. LYSINE [Concomitant]
     Active Substance: LYSINE
  18. EVENING PRIMROSE OIL [Concomitant]
     Active Substance: EVENING PRIMROSE OIL\HERBALS
  19. LACTOBACILLUS ACIDPOPHILUS [Concomitant]
  20. CALCIUMW/D [Concomitant]
  21. HYDRALAZINE HYDROCHLORIDE. [Suspect]
     Active Substance: HYDRALAZINE HYDROCHLORIDE
     Indication: HYPERTENSION
     Dosage: ?          QUANTITY:1 TABLET(S);?
     Route: 048
     Dates: start: 20210529
  22. CHLORTHALIDONE. [Suspect]
     Active Substance: CHLORTHALIDONE
     Indication: HYPERTENSION
     Dosage: ?          QUANTITY:1 TABLET(S);?
     Route: 048
  23. HYDROCHLOROTHIAZIDE. [Concomitant]
     Active Substance: HYDROCHLOROTHIAZIDE
  24. BIOTIN [Concomitant]
     Active Substance: BIOTIN
  25. OMEGA 3 [Concomitant]
     Active Substance: OMEGA-3 FATTY ACIDS

REACTIONS (3)
  - Product use complaint [None]
  - Drug interaction [None]
  - Treatment noncompliance [None]
